FAERS Safety Report 25349364 (Version 3)
Quarter: 2025Q3

REPORT INFORMATION
  Report Type: Report from Study
  Country: US (occurrence: US)
  Receive Date: 20250522
  Receipt Date: 20250709
  Transmission Date: 20251020
  Serious: Yes (Other)
  Sender: MALLINCKRODT
  Company Number: US-MALLINCKRODT-MNK202502858

PATIENT
  Age: 50 Year
  Sex: Female

DRUGS (2)
  1. CORTICOTROPIN [Suspect]
     Active Substance: CORTICOTROPIN
     Indication: Parophthalmia
     Dates: start: 20250304
  2. CORTICOTROPIN [Suspect]
     Active Substance: CORTICOTROPIN
     Indication: Uveitis
     Dosage: 80 UNITS

REACTIONS (11)
  - Cataract [Not Recovered/Not Resolved]
  - Abdominal pain upper [Unknown]
  - Eye pain [Unknown]
  - Ocular hyperaemia [Unknown]
  - Photosensitivity reaction [Unknown]
  - Visual impairment [Unknown]
  - Vision blurred [Unknown]
  - Fatigue [Unknown]
  - Injection site pruritus [Recovering/Resolving]
  - Injection site irritation [Not Recovered/Not Resolved]
  - Injection site rash [Recovering/Resolving]

NARRATIVE: CASE EVENT DATE: 20250101
